FAERS Safety Report 25787994 (Version 1)
Quarter: 2025Q3

REPORT INFORMATION
  Report Type: Spontaneous
  Country: US (occurrence: US)
  Receive Date: 20250910
  Receipt Date: 20250910
  Transmission Date: 20251020
  Serious: Yes (Hospitalization)
  Sender: AMGEN
  Company Number: US-AMGEN-USASP2025176111

PATIENT
  Age: 57 Year
  Sex: Male

DRUGS (1)
  1. IMDELLTRA [Suspect]
     Active Substance: TARLATAMAB-DLLE
     Indication: Small cell lung cancer
     Dosage: UNK UNK, Q2WK
     Route: 065
     Dates: start: 202411

REACTIONS (2)
  - Gallbladder operation [Unknown]
  - Off label use [Unknown]

NARRATIVE: CASE EVENT DATE: 20241101
